FAERS Safety Report 6175838-3 (Version None)
Quarter: 2009Q2

REPORT INFORMATION
  Report Type: 
  Country: None (occurrence: None)
  Receive Date: 20090501
  Receipt Date: 20090422
  Transmission Date: 20091009
  Serious: Yes (Death, Hospitalization)
  Sender: FDA-Public Use
  Company Number: FR-AMGEN-QUU343910

PATIENT
  Sex: Female

DRUGS (9)
  1. NEULASTA [Suspect]
     Indication: CHEMOTHERAPY
     Route: 058
     Dates: start: 20080207, end: 20080420
  2. TAXOTERE [Suspect]
     Indication: BREAST CANCER
     Route: 042
     Dates: start: 20080418
  3. NEUPOGEN [Concomitant]
     Indication: DRUG USE FOR UNKNOWN INDICATION
     Dates: start: 20080426
  4. BACTRIM [Concomitant]
     Route: 048
  5. FLUOROURACIL [Concomitant]
  6. EPIRUBICIN [Concomitant]
  7. CYCLOPHOSPHAMIDE [Concomitant]
  8. NEXIUM [Concomitant]
     Dates: start: 20080426
  9. ACETAMINOPHEN [Concomitant]
     Dates: start: 20080426

REACTIONS (1)
  - TOXIC EPIDERMAL NECROLYSIS [None]
